FAERS Safety Report 4388690-3 (Version None)
Quarter: 2004Q2

REPORT INFORMATION
  Report Type: 
  Country: None (occurrence: None)
  Receive Date: 20040624
  Receipt Date: 20040615
  Transmission Date: 20050107
  Serious: Yes (Other)
  Sender: FDA-Public Use
  Company Number: US-JNJFOC-20040604319

PATIENT
  Age: 54 Year
  Sex: Female

DRUGS (1)
  1. REMICADE [Suspect]
     Indication: CROHN'S DISEASE
     Dosage: 450 MG, INTRAVENOUS
     Route: 042
     Dates: start: 20040526

REACTIONS (1)
  - MALIGNANT MELANOMA [None]
